FAERS Safety Report 5552223-6 (Version None)
Quarter: 2007Q4

REPORT INFORMATION
  Report Type: 
  Country: None (occurrence: None)
  Receive Date: 20071210
  Receipt Date: 20071123
  Transmission Date: 20080405
  Serious: Yes (Death)
  Sender: FDA-Public Use
  Company Number: ADE2007-0064

PATIENT
  Age: 76 Year
  Sex: Male
  Weight: 70 kg

DRUGS (9)
  1. CIPROFLOXACIN HCL [Suspect]
     Dosage: 250MG - BID -
  2. CARBOPLATIN [Suspect]
     Indication: SMALL CELL LUNG CANCER STAGE UNSPECIFIED
     Dosage: IV
     Route: 042
     Dates: start: 20060125, end: 20060125
  3. CLARITHROMYCIN [Suspect]
     Dosage: 250 MG BID
  4. ETOPOSIDE [Suspect]
     Indication: SMALL CELL LUNG CANCER STAGE UNSPECIFIED
     Dosage: IV
     Route: 042
     Dates: start: 20060125, end: 20060127
  5. BISOPROLOL [Concomitant]
  6. AMOXICILLIN AND CLAVULANATE POTASSIUM [Concomitant]
  7. DEXAMETHASONE TAB [Concomitant]
  8. DOMPERIDONE [Concomitant]
  9. OMEPRAZOLE [Concomitant]

REACTIONS (2)
  - CLOSTRIDIUM DIFFICILE COLITIS [None]
  - NEUTROPENIC SEPSIS [None]
